FAERS Safety Report 10970113 (Version 1)
Quarter: 2015Q1

REPORT INFORMATION
  Report Type: Spontaneous
  Country: US (occurrence: None)
  Receive Date: 20150330
  Receipt Date: 20150330
  Transmission Date: 20150721
  Serious: Yes (Other)
  Sender: FDA-Public Use
  Company Number: None

PATIENT
  Age: 66 Year
  Sex: Female

DRUGS (10)
  1. LORAZEPAM (ATIVAN) 1 MG ORAL TAB [Concomitant]
  2. REVLIMID [Suspect]
     Active Substance: LENALIDOMIDE
     Indication: PLASMA CELL MYELOMA
     Dosage: X21D/28D
     Route: 048
     Dates: start: 20140319
  3. ONDANSETRON (ZOFRAN ODT) 4 MG ORAL RAP DIS TAB [Concomitant]
  4. ACYCLOVIR (ZOVIRAX) 400 MG ORAL TAB [Concomitant]
  5. HYDROCODONE-ACETAMINOPHEN (NORCO) 5-325 MG ORAL TAB [Concomitant]
  6. FAMOTIDINE (PEPCID) 20 MG ORAL TAB [Concomitant]
  7. FLUOXETINE (PROZAC) 20 MG ORAL CAP [Concomitant]
  8. POTASSIUM CHLORIDE (K-TAB) 10 MEQ ORAL SR TAB [Concomitant]
  9. AMLODIPINE (NORVASC) 5 MG ORAL TAB [Concomitant]
  10. MORPHINE (MS CONTIN/ORAMORPH SR) 15 MG ORAL SR TAB [Concomitant]

REACTIONS (2)
  - Pruritus [None]
  - Rash [None]

NARRATIVE: CASE EVENT DATE: 20150319
